FAERS Safety Report 8224248-3 (Version None)
Quarter: 2012Q1

REPORT INFORMATION
  Report Type: 
  Country: None (occurrence: None)
  Receive Date: 20120321
  Receipt Date: 20120306
  Transmission Date: 20120608
  Serious: Yes (Hospitalization)
  Sender: FDA-Public Use
  Company Number: IT-CELGENEUS-083-50794-12030776

PATIENT

DRUGS (1)
  1. VIDAZA [Suspect]
     Dosage: 130 MILLIGRAM
     Route: 058
     Dates: start: 20120219, end: 20120223

REACTIONS (4)
  - PYREXIA [None]
  - HEADACHE [None]
  - ASTHENIA [None]
  - COUGH [None]
